FAERS Safety Report 25840692 (Version 2)
Quarter: 2025Q4

REPORT INFORMATION
  Report Type: Report from Study
  Country: US (occurrence: US)
  Receive Date: 20250924
  Receipt Date: 20251001
  Transmission Date: 20260117
  Serious: Yes (Other)
  Sender: TAKEDA
  Company Number: US-TAKEDA-2025TUS059150

PATIENT
  Sex: Female

DRUGS (6)
  1. TEDUGLUTIDE [Suspect]
     Active Substance: TEDUGLUTIDE
     Indication: Crohn^s disease
     Dosage: 0.37 MILLILITER, QD
     Dates: start: 202505
  2. TEDUGLUTIDE [Suspect]
     Active Substance: TEDUGLUTIDE
     Indication: Short-bowel syndrome
  3. TEDUGLUTIDE [Suspect]
     Active Substance: TEDUGLUTIDE
  4. TEDUGLUTIDE [Suspect]
     Active Substance: TEDUGLUTIDE
  5. FERUMOXYTOL [Suspect]
     Active Substance: FERUMOXYTOL
     Indication: Product used for unknown indication
     Dosage: UNK
  6. ENTYVIO [Concomitant]
     Active Substance: VEDOLIZUMAB
     Dosage: UNK

REACTIONS (5)
  - Anaphylactic reaction [Unknown]
  - Angioedema [Unknown]
  - Fatigue [Unknown]
  - Drug hypersensitivity [Unknown]
  - Cough [Unknown]
